FAERS Safety Report 4379576-9 (Version None)
Quarter: 2004Q2

REPORT INFORMATION
  Report Type: 
  Country: None (occurrence: None)
  Receive Date: 20040415
  Receipt Date: 20040312
  Transmission Date: 20050107
  Serious: No
  Sender: FDA-Public Use
  Company Number: 2004-03-1021

PATIENT

DRUGS (1)
  1. CLARINEX [Suspect]
     Indication: CANCER PAIN
     Dosage: ORAL
     Route: 048

REACTIONS (2)
  - INTENTIONAL MISUSE [None]
  - UNEXPECTED THERAPEUTIC DRUG EFFECT [None]
